FAERS Safety Report 9826824 (Version 1)
Quarter: 2013Q4

REPORT INFORMATION
  Report Type: Spontaneous
  Country: US (occurrence: None)
  Receive Date: 20131120
  Receipt Date: 20131120
  Transmission Date: 20140711
  Serious: Yes (Hospitalization)
  Sender: FDA-Public Use
  Company Number: A-US2013-85398

PATIENT
  Age: 32 Year
  Sex: Male

DRUGS (3)
  1. VENTAVIS [Suspect]
     Indication: PULMONARY ARTERIAL HYPERTENSION
     Dosage: RESPIRATORY
  2. SILDENAFIL(SILDENAFIL) [Concomitant]
  3. LETAIRIS(AMBRISENTAN) [Concomitant]

REACTIONS (2)
  - Pneumonia [None]
  - Drug dose omission [None]
